FAERS Safety Report 4365931-X (Version None)
Quarter: 2004Q2

REPORT INFORMATION
  Report Type: 
  Country: None (occurrence: None)
  Receive Date: 20040520
  Receipt Date: 20040511
  Transmission Date: 20050107
  Serious: Yes (Other)
  Sender: FDA-Public Use
  Company Number: JP-JNJFOC-20040502773

PATIENT

DRUGS (3)
  1. RISPERDAL [Suspect]
     Dosage: ORAL
     Route: 048
  2. HALOPERIDOL [Suspect]
     Dosage: ORAL
     Route: 048
  3. TRIHEXYPHENIDYL HCL [Concomitant]

REACTIONS (3)
  - APHAGIA [None]
  - AREFLEXIA [None]
  - DRUG INTERACTION [None]
